FAERS Safety Report 24706302 (Version 1)
Quarter: 2024Q4

REPORT INFORMATION
  Report Type: Spontaneous
  Country: US (occurrence: None)
  Receive Date: 20241206
  Receipt Date: 20241206
  Transmission Date: 20250115
  Serious: Yes (Hospitalization)
  Sender: Public
  Company Number: None

PATIENT
  Sex: Male

DRUGS (11)
  1. COLISTIMETHATE [Suspect]
     Active Substance: COLISTIMETHATE SODIUM
     Indication: Cystic fibrosis
     Dosage: OTHER FREQUENCY : EVERY12HOURS28DAYSON28DAYSOFF;?
     Route: 024
     Dates: start: 20240207
  2. ADVAIR DISKUS [Concomitant]
     Active Substance: FLUTICASONE PROPIONATE\SALMETEROL XINAFOATE
  3. ALBUTEROL AER HFA [Concomitant]
  4. AZITHROMYCIN [Concomitant]
     Active Substance: AZITHROMYCIN
  5. ELIOUIS TAB 5MG [Concomitant]
  6. MIRTAZAPINE TAB 15MG [Concomitant]
  7. NORCO TAB 10-325MG [Concomitant]
  8. NYSTATIN SUS 100000 [Concomitant]
  9. PANTOPRAZOLE TAB 40MG [Concomitant]
  10. PREDNISONE [Concomitant]
     Active Substance: PREDNISONE
  11. SODIUM CHLORIDE [Concomitant]
     Active Substance: SODIUM CHLORIDE

REACTIONS (2)
  - Hospitalisation [None]
  - Intentional dose omission [None]
